FAERS Safety Report 22167677 (Version 4)
Quarter: 2024Q1

REPORT INFORMATION
  Report Type: Spontaneous
  Country: US (occurrence: US)
  Receive Date: 20230403
  Receipt Date: 20240118
  Transmission Date: 20240410
  Serious: No
  Sender: FDA-Public Use
  Company Number: US-PFIZER INC-PV202300059091

PATIENT
  Age: 45 Year
  Sex: Female

DRUGS (1)
  1. IBRANCE [Suspect]
     Active Substance: PALBOCICLIB
     Indication: Breast cancer female
     Dosage: 125 MG, CYCLIC )TAKE 1 TABLET (125MG) BY MOUTH DAILY. TAKE ON DAYS 1-21 FOLLOWED BY 7 DAYS OFF. REPE
     Route: 048

REACTIONS (2)
  - Attention deficit hyperactivity disorder [Unknown]
  - Nervousness [Unknown]
